FAERS Safety Report 12328352 (Version 1)
Quarter: 2016Q2

REPORT INFORMATION
  Report Type: Spontaneous
  Country: FR (occurrence: FR)
  Receive Date: 20160503
  Receipt Date: 20160503
  Transmission Date: 20160815
  Serious: Yes (Life-Threatening, Hospitalization)
  Sender: FDA-Public Use
  Company Number: FR-PFIZER INC-2016237633

PATIENT
  Age: 67 Year
  Sex: Female

DRUGS (9)
  1. HALDOL [Suspect]
     Active Substance: HALOPERIDOL
     Dosage: 40 DF (DROPS), 1X/DAY
     Route: 048
     Dates: end: 20160320
  2. PROPRANOLOL [Suspect]
     Active Substance: PROPRANOLOL\PROPRANOLOL HYDROCHLORIDE
     Dosage: 0.5 DF, 2X/DAY
     Route: 048
     Dates: end: 20160320
  3. EFFEXOR LP [Suspect]
     Active Substance: VENLAFAXINE HYDROCHLORIDE
     Dosage: 2 DF, 1X/DAY
     Route: 048
     Dates: end: 20160320
  4. NORDAZ [Suspect]
     Active Substance: NORDAZEPAM
     Dosage: 4.5 DF, 1X/DAY
     Route: 048
     Dates: end: 20160320
  5. ESOMEPRAZOLE [Suspect]
     Active Substance: ESOMEPRAZOLE
     Dosage: 1 DF, 1X/DAY
     Route: 048
     Dates: end: 20160320
  6. NOCTAMIDE [Suspect]
     Active Substance: LORMETAZEPAM
     Dosage: 1 DF, 1X/DAY
     Route: 048
     Dates: end: 20160320
  7. LEPTICUR [Suspect]
     Active Substance: TROPATEPINE HYDROCHLORIDE
     Dosage: 1 DF, 1X/DAY
     Route: 048
     Dates: end: 20160320
  8. LARGACTIL [Suspect]
     Active Substance: CHLORPROMAZINE
     Dosage: 50 DF (DROPS), 1X/DAY
     Route: 048
     Dates: end: 20160320
  9. CRESTOR [Suspect]
     Active Substance: ROSUVASTATIN CALCIUM
     Dosage: 1 DF, 1X/DAY
     Route: 048
     Dates: end: 20160320

REACTIONS (3)
  - Pneumonia aspiration [Recovered/Resolved]
  - Coma [Recovered/Resolved]
  - Depressed level of consciousness [Recovered/Resolved]

NARRATIVE: CASE EVENT DATE: 20160320
